FAERS Safety Report 20907646 (Version 1)
Quarter: 2022Q2

REPORT INFORMATION
  Report Type: Report from Study
  Country: BR (occurrence: BR)
  Receive Date: 20220602
  Receipt Date: 20220602
  Transmission Date: 20220721
  Serious: Yes (Other)
  Sender: FDA-Public Use
  Company Number: BR-NOVARTISPH-NVSC2022BR049434

PATIENT
  Age: 48 Year
  Sex: Female

DRUGS (2)
  1. KISQALI [Suspect]
     Active Substance: RIBOCICLIB
     Indication: Neoplasm malignant
     Dosage: 600 MG, QD
     Route: 065
     Dates: start: 20211026
  2. LETROZOLE [Suspect]
     Active Substance: LETROZOLE
     Indication: Product used for unknown indication
     Dosage: UNK
     Route: 065
     Dates: start: 20211026

REACTIONS (5)
  - Metastases to bone [Recovering/Resolving]
  - Aphthous ulcer [Unknown]
  - Burning sensation [Unknown]
  - Glossodynia [Unknown]
  - Injury [Recovering/Resolving]

NARRATIVE: CASE EVENT DATE: 20220101
